FAERS Safety Report 5460958-9 (Version None)
Quarter: 2007Q3

REPORT INFORMATION
  Report Type: 
  Country: None (occurrence: None)
  Receive Date: 20070823
  Receipt Date: 20070531
  Transmission Date: 20080115
  Serious: No
  Sender: FDA-Public Use
  Company Number: 2007SP010709

PATIENT
  Age: 16 Year
  Sex: Male
  Weight: 45 kg

DRUGS (24)
  1. NOXAFIL [Suspect]
     Indication: BRONCHOPULMONARY ASPERGILLOSIS
     Dosage: 40 MG;BID;PO
     Route: 048
     Dates: start: 20070523, end: 20070524
  2. BACTRIM DS [Concomitant]
  3. CASPOFUNGIN [Concomitant]
  4. INTERFERON GAMMA [Concomitant]
  5. ETHYL CHLORIDE [Concomitant]
  6. SINGULAIR [Concomitant]
  7. PHENERGAN HCL [Concomitant]
  8. ROCALTROL [Concomitant]
  9. LEVALBUTEROL TARTRATE [Concomitant]
  10. AMBISOME [Concomitant]
  11. ZYRTEC [Concomitant]
  12. MAGNESIUM OXIDE [Concomitant]
  13. CLARITHROMYCIN [Concomitant]
  14. PYRIDOXINE HCL [Concomitant]
  15. FERROUS SULFATE TAB [Concomitant]
  16. RANITIDINE HCL [Concomitant]
  17. SODIUM BICARBONATE [Concomitant]
  18. EPOGEN [Concomitant]
  19. CYPROHEPTADINE HCL [Concomitant]
  20. POTASSIUM CHLORIDE [Concomitant]
  21. HEPARIN LOCK-FLUSH [Concomitant]
  22. FLUTICASONE-SALMETEROL [Concomitant]
  23. VORICONAZOLE [Concomitant]
  24. ITRACONAZOLE [Concomitant]

REACTIONS (1)
  - PRURITUS [None]
